FAERS Safety Report 8836894 (Version 1)
Quarter: 2012Q4

REPORT INFORMATION
  Report Type: Spontaneous
  Country: US (occurrence: None)
  Receive Date: 20121011
  Receipt Date: 20121011
  Transmission Date: 20130627
  Serious: No
  Sender: FDA-Public Use
  Company Number: None

PATIENT
  Age: 73 Year
  Sex: Male
  Weight: 90.8 kg

DRUGS (1)
  1. WARFARIN [Suspect]
     Indication: DEEP VEIN THROMBOSIS
     Dosage: EVERY DAY PO
     Route: 048
     Dates: start: 20120913, end: 20120927

REACTIONS (3)
  - International normalised ratio increased [None]
  - Haemorrhage [None]
  - Haematoma [None]
